FAERS Safety Report 5484936-9 (Version None)
Quarter: 2007Q4

REPORT INFORMATION
  Report Type: 
  Country: None (occurrence: None)
  Receive Date: 20071011
  Receipt Date: 20070926
  Transmission Date: 20080405
  Serious: Yes (Death)
  Sender: FDA-Public Use
  Company Number: KADN20070091

PATIENT
  Age: 43 Year
  Sex: Female
  Weight: 133.3575 kg

DRUGS (11)
  1. KADIAN [Suspect]
     Indication: BACK PAIN
     Dosage: 1 CAP DAILY, PER ORAL
     Route: 048
     Dates: start: 20070829, end: 20070101
  2. PERCOCET [Concomitant]
  3. ZOLOFT [Concomitant]
  4. VALIUM [Concomitant]
  5. LYRICA [Concomitant]
  6. IMITREX [Concomitant]
  7. BENICAR [Concomitant]
  8. VYTORIN [Concomitant]
  9. PREVACID [Concomitant]
  10. LEVSIN [Concomitant]
  11. NAPROSYN [Concomitant]

REACTIONS (2)
  - ASTHMA [None]
  - SOMNOLENCE [None]
